FAERS Safety Report 6096175-1 (Version None)
Quarter: 2009Q1

REPORT INFORMATION
  Report Type: 
  Country: None (occurrence: None)
  Receive Date: 20090227
  Receipt Date: 20080923
  Transmission Date: 20090719
  Serious: No
  Sender: FDA-Public Use
  Company Number: A0748706A

PATIENT
  Age: 19 Year
  Sex: Female

DRUGS (4)
  1. LAMICTAL [Suspect]
     Indication: BIPOLAR DISORDER
     Dosage: 25MG TWICE PER DAY
     Route: 048
     Dates: start: 20080902, end: 20080916
  2. PROZAC [Concomitant]
  3. ADDERALL 10 [Concomitant]
  4. UNKNOWN MEDICATION [Concomitant]

REACTIONS (4)
  - DIZZINESS [None]
  - MYALGIA [None]
  - NAUSEA [None]
  - SOMNOLENCE [None]
